FAERS Safety Report 13461955 (Version 1)
Quarter: 2017Q2

REPORT INFORMATION
  Report Type: Spontaneous
  Country: None (occurrence: US)
  Receive Date: 20170420
  Receipt Date: 20170420
  Transmission Date: 20170830
  Serious: Yes (Hospitalization)
  Sender: FDA-Public Use
  Company Number: None

PATIENT
  Age: 62 Year
  Sex: Male
  Weight: 54 kg

DRUGS (2)
  1. 5-FLUOROURACIL (5-FU) [Suspect]
     Active Substance: FLUOROURACIL
     Dates: end: 20170314
  2. CISPLATIN. [Suspect]
     Active Substance: CISPLATIN
     Dates: end: 20170310

REACTIONS (4)
  - Anaemia [None]
  - Dysarthria [None]
  - Pancytopenia [None]
  - Subarachnoid haemorrhage [None]

NARRATIVE: CASE EVENT DATE: 20170327
